FAERS Safety Report 8131184-X (Version None)
Quarter: 2012Q1

REPORT INFORMATION
  Report Type: 
  Country: None (occurrence: None)
  Receive Date: 20120213
  Receipt Date: 20120201
  Transmission Date: 20120608
  Serious: Yes (Life-Threatening)
  Sender: FDA-Public Use
  Company Number: CA-JNJFOC-20120203418

PATIENT
  Sex: Female
  Weight: 71.5 kg

DRUGS (2)
  1. REMICADE [Suspect]
     Dosage: 22ND INFUSION (4 VIALS)
     Route: 042
     Dates: start: 20120201
  2. REMICADE [Suspect]
     Indication: CROHN'S DISEASE
     Route: 042
     Dates: start: 20090101

REACTIONS (7)
  - FEELING ABNORMAL [None]
  - NAUSEA [None]
  - BRADYCARDIA [None]
  - INFUSION RELATED REACTION [None]
  - HEADACHE [None]
  - FLUSHING [None]
  - MATERNAL EXPOSURE DURING PREGNANCY [None]
